FAERS Safety Report 6021835-8 (Version None)
Quarter: 2008Q4

REPORT INFORMATION
  Report Type: 
  Country: None (occurrence: None)
  Receive Date: 20081222
  Receipt Date: 20081016
  Transmission Date: 20090506
  Serious: No
  Sender: FDA-Public Use
  Company Number: ALL1-2008-03026

PATIENT
  Age: 22 Year
  Sex: Female
  Weight: 72.6 kg

DRUGS (2)
  1. VYVANSE [Suspect]
     Indication: ATTENTION DEFICIT/HYPERACTIVITY DISORDER
     Dosage: 50 MG, 1X/DAY:QD ORAL
     Route: 048
     Dates: start: 20080301
  2. YASMINE (DROSPIRENONE, ETHINYLESTRADIOL) [Concomitant]

REACTIONS (4)
  - ABDOMINAL DISCOMFORT [None]
  - DRUG INEFFECTIVE [None]
  - HEART RATE INCREASED [None]
  - PALPITATIONS [None]
